FAERS Safety Report 25510019 (Version 3)
Quarter: 2025Q3

REPORT INFORMATION
  Report Type: Spontaneous
  Country: US (occurrence: US)
  Receive Date: 20250703
  Receipt Date: 20250728
  Transmission Date: 20251021
  Serious: Yes (Other)
  Sender: BAYER HEALTHCARE PHARMACEUTICALS INC.
  Company Number: US-BAYER-2025A086727

PATIENT
  Age: 24 Year
  Sex: Female
  Weight: 58.05 kg

DRUGS (7)
  1. KYLEENA [Suspect]
     Active Substance: LEVONORGESTREL
     Indication: Contraception
     Dosage: 17.5?G/DAY
     Route: 015
     Dates: start: 20230918, end: 20250609
  2. SERTRALINE [Concomitant]
     Active Substance: SERTRALINE HYDROCHLORIDE
     Indication: Depression
  3. LITHIUM CARBONATE [Concomitant]
     Active Substance: LITHIUM CARBONATE
     Indication: Depression
     Dates: start: 20250514
  4. LITHIUM CARBONATE [Concomitant]
     Active Substance: LITHIUM CARBONATE
     Indication: Depression
     Dates: start: 20250528
  5. FLUCONAZOLE [Concomitant]
     Active Substance: FLUCONAZOLE
     Dosage: 1 DF, QD
     Route: 048
     Dates: start: 20250310
  6. HYDROXYZINE [Concomitant]
     Active Substance: HYDROXYZINE HYDROCHLORIDE
     Dosage: UNK UNK, QD
     Route: 048
     Dates: start: 20230430
  7. KETOCONAZOLE [Concomitant]
     Active Substance: KETOCONAZOLE
     Dosage: UNK UNK, BID
     Route: 061
     Dates: start: 20250203

REACTIONS (14)
  - Pregnancy with contraceptive device [Recovering/Resolving]
  - Haemorrhage in pregnancy [None]
  - Abortion spontaneous [None]
  - Drug ineffective [None]
  - Device dislocation [Recovered/Resolved]
  - Abdominal pain lower [None]
  - Coital bleeding [None]
  - Fatigue [None]
  - Nausea [None]
  - Pelvic pain [None]
  - Impaired work ability [None]
  - Emotional distress [None]
  - Psychological trauma [None]
  - Oligomenorrhoea [None]

NARRATIVE: CASE EVENT DATE: 20230101
